FAERS Safety Report 9435082 (Version 2)
Quarter: 2014Q1

REPORT INFORMATION
  Report Type: Spontaneous
  Country: US (occurrence: US)
  Receive Date: 20130801
  Receipt Date: 20140117
  Transmission Date: 20141002
  Serious: Yes (Hospitalization, Other)
  Sender: FDA-Public Use
  Company Number: US-BAYER-2013-092702

PATIENT
  Age: 38 Year
  Sex: Female
  Weight: 122.45 kg

DRUGS (1)
  1. MIRENA [Suspect]
     Indication: MENORRHAGIA
     Dosage: 20 MCG/24HR, CONT
     Route: 015
     Dates: start: 200512, end: 201101

REACTIONS (13)
  - Pain [None]
  - Embedded device [None]
  - Abdominal pain [None]
  - Pelvic pain [None]
  - Urinary tract infection [None]
  - Depression [None]
  - Anxiety [None]
  - Post-traumatic stress disorder [None]
  - Fear [None]
  - Loss of consciousness [None]
  - Nightmare [None]
  - Emotional distress [None]
  - Mood swings [None]
